FAERS Safety Report 18415745 (Version 2)
Quarter: 2020Q4

REPORT INFORMATION
  Report Type: Spontaneous
  Country: US (occurrence: US)
  Receive Date: 20201022
  Receipt Date: 20201215
  Transmission Date: 20210114
  Serious: No
  Sender: FDA-Public Use
  Company Number: US-PFIZER INC-2020409762

PATIENT
  Age: 60 Year
  Sex: Female

DRUGS (2)
  1. IBRANCE [Suspect]
     Active Substance: PALBOCICLIB
     Dosage: 100 MG, EVERYDAY (X 21 DAYS, THEN OFF 7 DAYS)
     Dates: start: 20180927
  2. IBRANCE [Suspect]
     Active Substance: PALBOCICLIB
     Indication: BREAST CANCER FEMALE
     Dosage: 100 MG, QD (X 21 DAYS, Q 28 DAYS)
     Dates: start: 20180926

REACTIONS (2)
  - Pharyngitis streptococcal [Recovered/Resolved]
  - Product dose omission issue [Unknown]
